FAERS Safety Report 8686878 (Version 4)
Quarter: 2012Q4

REPORT INFORMATION
  Report Type: 
  Country: JP (occurrence: JP)
  Receive Date: 20120727
  Receipt Date: 20120906
  Transmission Date: 20130627
  Serious: Yes (Hospitalization, Other)
  Sender: FDA-Public Use
  Company Number: JP-JNJFOC-20120708681

PATIENT
  Age: 4 None
  Sex: Female

DRUGS (3)
  1. REMICADE [Suspect]
     Indication: CROHN^S DISEASE
     Route: 042
     Dates: start: 20070319
  2. REMICADE [Suspect]
     Indication: CROHN^S DISEASE
     Dosage: sixth dose
     Route: 042
  3. REMICADE [Suspect]
     Indication: CROHN^S DISEASE
     Route: 042

REACTIONS (3)
  - Arthritis [Unknown]
  - Autoantibody positive [Unknown]
  - Arthralgia [Recovering/Resolving]
